FAERS Safety Report 14600075 (Version 1)
Quarter: 2018Q1

REPORT INFORMATION
  Report Type: Spontaneous
  Country: IT (occurrence: IT)
  Receive Date: 20180305
  Receipt Date: 20180305
  Transmission Date: 20180509
  Serious: Yes (Other)
  Sender: FDA-Public Use
  Company Number: IT-SA-2018SA051390

PATIENT
  Age: 48 Year
  Sex: Male
  Weight: 81 kg

DRUGS (2)
  1. CLEXANE [Suspect]
     Active Substance: ENOXAPARIN SODIUM
     Indication: IMMOBILISATION PROLONGED
     Route: 065
     Dates: start: 20180203
  2. VIVIN-C [Concomitant]
     Indication: PAIN IN EXTREMITY
     Route: 048
     Dates: start: 20180203, end: 20180203

REACTIONS (2)
  - Syringomyelia [Not Recovered/Not Resolved]
  - Haematoma [Not Recovered/Not Resolved]

NARRATIVE: CASE EVENT DATE: 20180204
